FAERS Safety Report 5675359-8 (Version None)
Quarter: 2008Q1

REPORT INFORMATION
  Report Type: 
  Country: None (occurrence: None)
  Receive Date: 20080320
  Receipt Date: 20080317
  Transmission Date: 20080703
  Serious: Yes (Other)
  Sender: FDA-Public Use
  Company Number: FR-BOEHRINGER INGELHEIM GMBH, GERMANY-2008-DE-01656GD

PATIENT

DRUGS (4)
  1. NEVIRAPINE [Suspect]
     Indication: PROPHYLAXIS
     Route: 064
  2. NEVIRAPINE [Suspect]
     Indication: HUMAN IMMUNODEFICIENCY VIRUS TRANSMISSION
  3. ANTI-HIV DRUGS [Suspect]
     Indication: PROPHYLAXIS
     Route: 064
  4. ANTI-HIV DRUGS [Suspect]
     Indication: HUMAN IMMUNODEFICIENCY VIRUS TRANSMISSION

REACTIONS (2)
  - DRUG ADMINISTRATION ERROR [None]
  - HIV INFECTION [None]
